FAERS Safety Report 23567296 (Version 5)
Quarter: 2025Q2

REPORT INFORMATION
  Report Type: Spontaneous
  Country: US (occurrence: US)
  Receive Date: 20240226
  Receipt Date: 20250507
  Transmission Date: 20250717
  Serious: No
  Sender: VERTEX
  Company Number: US-VERTEX PHARMACEUTICALS-2024-001607

PATIENT
  Age: 29 Year

DRUGS (1)
  1. TRIKAFTA [Suspect]
     Active Substance: ELEXACAFTOR\IVACAFTOR\TEZACAFTOR
     Indication: Cystic fibrosis
     Route: 048

REACTIONS (7)
  - Abdominal pain upper [Recovered/Resolved]
  - Myalgia [Recovered/Resolved]
  - Cough [Unknown]
  - Sinus disorder [Recovered/Resolved]
  - Feeling abnormal [Recovered/Resolved]
  - Pain [Recovered/Resolved]
  - Mental disorder [Not Recovered/Not Resolved]
